FAERS Safety Report 5729278-9 (Version None)
Quarter: 2008Q2

REPORT INFORMATION
  Report Type: 
  Country: None (occurrence: None)
  Receive Date: 20080506
  Receipt Date: 20080424
  Transmission Date: 20081010
  Serious: Yes (Hospitalization)
  Sender: FDA-Public Use
  Company Number: FR-PFIZER INC-2008036683

PATIENT
  Sex: Female

DRUGS (2)
  1. MEDROL [Suspect]
     Indication: PREMEDICATION
     Route: 048
     Dates: start: 20080117, end: 20080119
  2. TAXOTERE [Suspect]
     Indication: BREAST CANCER
     Route: 042

REACTIONS (1)
  - PALMAR-PLANTAR ERYTHRODYSAESTHESIA SYNDROME [None]
